FAERS Safety Report 23900196 (Version 1)
Quarter: 2024Q2

REPORT INFORMATION
  Report Type: Spontaneous
  Country: US (occurrence: None)
  Receive Date: 20240526
  Receipt Date: 20240526
  Transmission Date: 20240715
  Serious: No
  Sender: FDA-Public Use
  Company Number: US-ROCHE-3370754

PATIENT
  Sex: Female

DRUGS (1)
  1. OCREVUS [Suspect]
     Active Substance: OCRELIZUMAB
     Indication: Multiple sclerosis
     Route: 042

REACTIONS (7)
  - Throat irritation [Unknown]
  - Dizziness [Unknown]
  - Hypotension [Unknown]
  - Chest pain [Unknown]
  - Vomiting [Unknown]
  - Anxiety [Unknown]
  - Diarrhoea [Unknown]
